FAERS Safety Report 18758205 (Version 2)
Quarter: 2021Q1

REPORT INFORMATION
  Report Type: Report from Study
  Country: US (occurrence: US)
  Receive Date: 20210119
  Receipt Date: 20210301
  Transmission Date: 20210419
  Serious: Yes (Hospitalization)
  Sender: FDA-Public Use
  Company Number: US-ADAMAS PHARMA, LLC-2020ADA02891

PATIENT
  Age: 82 Year
  Sex: Male

DRUGS (8)
  1. GOCOVRI [Suspect]
     Active Substance: AMANTADINE
     Dosage: 274 MG, 1X/DAY AT BEDTIME
     Route: 048
     Dates: start: 20201117, end: 2020
  2. MELOXICAM. [Concomitant]
     Active Substance: MELOXICAM
  3. OCUVITE [Concomitant]
     Active Substance: VITAMINS
  4. BIOTIN PLUS/CALCIUM/VITAMIN D [Concomitant]
  5. GOCOVRI [Suspect]
     Active Substance: AMANTADINE
     Indication: DYSKINESIA
     Dosage: 137 MG, 1X/DAY AT BEDTIME
     Route: 048
     Dates: start: 20201110, end: 20201116
  6. ONDANSETRON [Concomitant]
     Active Substance: ONDANSETRON
  7. CARBIDOPA/LEVODOPA [Concomitant]
     Active Substance: CARBIDOPA\LEVODOPA
  8. RIVASTIGMINE. [Concomitant]
     Active Substance: RIVASTIGMINE

REACTIONS (6)
  - Asthenia [Recovered/Resolved]
  - Acute kidney injury [Unknown]
  - Atrial fibrillation [Unknown]
  - Mental status changes [Unknown]
  - Fall [Recovered/Resolved]
  - Dysarthria [Recovered/Resolved]

NARRATIVE: CASE EVENT DATE: 2020
